FAERS Safety Report 20195773 (Version 2)
Quarter: 2023Q1

REPORT INFORMATION
  Report Type: Report from Study
  Country: FR (occurrence: FR)
  Receive Date: 20211216
  Receipt Date: 20230111
  Transmission Date: 20230418
  Serious: Yes (Death)
  Sender: FDA-Public Use
  Company Number: FR-JNJFOC-20211058963

PATIENT
  Age: 62 Year
  Sex: Male

DRUGS (3)
  1. DEXAMETHASONE [Suspect]
     Active Substance: DEXAMETHASONE
     Indication: Plasma cell myeloma
     Dosage: 20 MG, QW (4 WEEK/CYCLE)
     Route: 065
     Dates: end: 20200123
  2. BENDAMUSTINE HYDROCHLORIDE [Suspect]
     Active Substance: BENDAMUSTINE HYDROCHLORIDE
     Indication: Plasma cell myeloma
     Dosage: 70 MG/SQ. METER, QW (2 WEEK/CYCLE)
     Route: 065
     Dates: end: 20200123
  3. VELCADE [Suspect]
     Active Substance: BORTEZOMIB
     Indication: Plasma cell myeloma
     Dosage: 1.3 MG/SQ. METER, QW (4 WEEK/CYCLE)
     Route: 065
     Dates: end: 20200123

REACTIONS (4)
  - Plasma cell myeloma [Fatal]
  - Pyrexia [Unknown]
  - Off label use [Unknown]
  - Product use issue [Unknown]
